FAERS Safety Report 5575781-4 (Version None)
Quarter: 2007Q4

REPORT INFORMATION
  Report Type: 
  Country: None (occurrence: None)
  Receive Date: 20071221
  Receipt Date: 20071210
  Transmission Date: 20080405
  Serious: Yes (Hospitalization)
  Sender: FDA-Public Use
  Company Number: S07-NLD-06075-01

PATIENT
  Age: 81 Year
  Sex: Female
  Weight: 76 kg

DRUGS (8)
  1. LEXAPRO [Suspect]
     Dosage: 10 MG QD PO
     Route: 048
     Dates: start: 20070521, end: 20070530
  2. HYDROCHLOROTHIAZIDE [Suspect]
     Dosage: 12.5 MG QD PO
     Route: 048
     Dates: end: 20070101
  3. ENALAPRIL [Suspect]
     Dosage: 20 MG QD PO
     Route: 048
  4. SOTALOL HYDROCHLORIDE [Concomitant]
  5. CARBASALAATCALCIUM(CARBASALATE CALCIUM) [Concomitant]
  6. NICARDIPINE HYDROCHLORIDE [Concomitant]
  7. LORAZEPAM [Concomitant]
  8. LEVOTHYROXINE SODIUM [Concomitant]

REACTIONS (4)
  - HYPOKALAEMIA [None]
  - HYPONATRAEMIA [None]
  - SOMNOLENCE [None]
  - VOMITING [None]
